FAERS Safety Report 13340304 (Version 1)
Quarter: 2017Q1

REPORT INFORMATION
  Report Type: Report from Study
  Country: US (occurrence: US)
  Receive Date: 20170316
  Receipt Date: 20170316
  Transmission Date: 20170428
  Serious: Yes (Other)
  Sender: FDA-Public Use
  Company Number: US-GILEAD-2017-0260684

PATIENT
  Age: 68 Year
  Sex: Female
  Weight: 90.25 kg

DRUGS (24)
  1. LUNESTA [Concomitant]
     Active Substance: ESZOPICLONE
  2. AMBRISENTAN [Suspect]
     Active Substance: AMBRISENTAN
     Indication: PULMONARY ARTERIAL HYPERTENSION
  3. VESICARE [Concomitant]
     Active Substance: SOLIFENACIN SUCCINATE
  4. FLUOXETINE [Concomitant]
     Active Substance: FLUOXETINE HYDROCHLORIDE
  5. CRESTOR [Concomitant]
     Active Substance: ROSUVASTATIN CALCIUM
  6. CYCLOBENZAPRINE [Concomitant]
     Active Substance: CYCLOBENZAPRINE
  7. LEVALBUTEROL                       /01419301/ [Concomitant]
  8. PAXIL [Concomitant]
     Active Substance: PAROXETINE HYDROCHLORIDE
  9. FERROUS SULFATE. [Concomitant]
     Active Substance: FERROUS SULFATE
  10. DIGOXIN. [Concomitant]
     Active Substance: DIGOXIN
  11. SPIRIVA [Concomitant]
     Active Substance: TIOTROPIUM BROMIDE MONOHYDRATE
  12. AMBRISENTAN [Suspect]
     Active Substance: AMBRISENTAN
     Indication: PULMONARY ARTERIAL HYPERTENSION
     Dosage: 10 MG, QD
     Route: 048
     Dates: start: 20130327
  13. LASIX [Concomitant]
     Active Substance: FUROSEMIDE
  14. ALBUTEROL SULFATE. [Concomitant]
     Active Substance: ALBUTEROL SULFATE
  15. ADCIRCA [Concomitant]
     Active Substance: TADALAFIL
  16. SPIRIVA [Concomitant]
     Active Substance: TIOTROPIUM BROMIDE MONOHYDRATE
  17. DICYCLOMINE                        /00068601/ [Concomitant]
     Active Substance: DICYCLOMINE HYDROCHLORIDE
  18. BROVANA [Concomitant]
     Active Substance: ARFORMOTEROL TARTRATE
  19. ALPRAZOLAM. [Concomitant]
     Active Substance: ALPRAZOLAM
  20. BUDESONIDE. [Concomitant]
     Active Substance: BUDESONIDE
  21. PROMETHAZINE [Concomitant]
     Active Substance: PROMETHAZINE\PROMETHAZINE HYDROCHLORIDE
  22. NEXIUM [Concomitant]
     Active Substance: ESOMEPRAZOLE MAGNESIUM
  23. PROZAC [Concomitant]
     Active Substance: FLUOXETINE HYDROCHLORIDE
  24. PHENAZOPYRIDINE. [Concomitant]
     Active Substance: PHENAZOPYRIDINE

REACTIONS (2)
  - Urinary tract infection [Not Recovered/Not Resolved]
  - Bladder cancer [Unknown]

NARRATIVE: CASE EVENT DATE: 201603
